FAERS Safety Report 12751369 (Version 1)
Quarter: 2016Q3

REPORT INFORMATION
  Report Type: Spontaneous
  Country: US (occurrence: US)
  Receive Date: 20160916
  Receipt Date: 20160916
  Transmission Date: 20161109
  Serious: No
  Sender: FDA-Public Use
  Company Number: None

PATIENT
  Age: 71 Year
  Sex: Male
  Weight: 90 kg

DRUGS (1)
  1. ATORVASTATIN [Suspect]
     Active Substance: ATORVASTATIN
     Indication: LIPIDS INCREASED
     Route: 048
     Dates: start: 20160822, end: 20160915

REACTIONS (6)
  - Fatigue [None]
  - Pain [None]
  - Eyelid ptosis [None]
  - Diplopia [None]
  - Pain in extremity [None]
  - Dry eye [None]

NARRATIVE: CASE EVENT DATE: 20160914
